FAERS Safety Report 9190465 (Version 1)
Quarter: 2013Q1

REPORT INFORMATION
  Report Type: Spontaneous
  Country: KR (occurrence: KR)
  Receive Date: 20130326
  Receipt Date: 20130326
  Transmission Date: 20140127
  Serious: Yes (Life-Threatening)
  Sender: FDA-Public Use
  Company Number: KR-SANOFI-AVENTIS-2013SA029479

PATIENT
  Age: 74 Year
  Sex: Male

DRUGS (2)
  1. ZOLPIDEM [Suspect]
     Indication: INSOMNIA
     Dosage: DOSE: 1-2 TABLETS
     Route: 065
  2. ZOLPIDEM [Suspect]
     Indication: INSOMNIA
     Route: 048
     Dates: start: 20120904, end: 20120904

REACTIONS (6)
  - Dehydration [Not Recovered/Not Resolved]
  - Intentional overdose [Unknown]
  - Vomiting [Not Recovered/Not Resolved]
  - Rib fracture [Not Recovered/Not Resolved]
  - Disturbance in attention [Not Recovered/Not Resolved]
  - Suicide attempt [Unknown]
